FAERS Safety Report 11797355 (Version 1)
Quarter: 2015Q4

REPORT INFORMATION
  Report Type: Report from Study
  Country: GB (occurrence: GB)
  Receive Date: 20151203
  Receipt Date: 20151203
  Transmission Date: 20160305
  Serious: Yes (Life-Threatening, Hospitalization)
  Sender: FDA-Public Use
  Company Number: GB-ABBVIE-15P-167-1511092-00

PATIENT
  Age: 50 Year
  Sex: Male
  Weight: 70.8 kg

DRUGS (3)
  1. NORVIR [Suspect]
     Active Substance: RITONAVIR
     Indication: HIV INFECTION
     Route: 048
     Dates: start: 20050204
  2. TRUVADA [Suspect]
     Active Substance: EMTRICITABINE\TENOFOVIR DISOPROXIL FUMARATE
     Indication: HIV INFECTION
     Dosage: 200/245 MG
     Route: 048
     Dates: start: 20050204
  3. ATAZANAVIR [Suspect]
     Active Substance: ATAZANAVIR
     Indication: HIV INFECTION
     Route: 048
     Dates: start: 20050204

REACTIONS (1)
  - Myocardial infarction [Recovered/Resolved]

NARRATIVE: CASE EVENT DATE: 20150211
